FAERS Safety Report 12366929 (Version 4)
Quarter: 2016Q3

REPORT INFORMATION
  Report Type: Report from Study
  Country: DE (occurrence: DE)
  Receive Date: 20160513
  Receipt Date: 20160701
  Transmission Date: 20161109
  Serious: Yes (Hospitalization, Other)
  Sender: FDA-Public Use
  Company Number: DE-GILEAD-2016-0213441

PATIENT
  Sex: Male
  Weight: 98 kg

DRUGS (15)
  1. BISOPROLOL [Concomitant]
     Active Substance: BISOPROLOL
  2. PHENPROCOUMON [Concomitant]
     Active Substance: PHENPROCOUMON
     Indication: ATRIAL FIBRILLATION
     Dosage: UNK
  3. IDELALISIB [Suspect]
     Active Substance: IDELALISIB
     Dosage: UNK
     Route: 048
     Dates: start: 20160513
  4. MABTHERA [Concomitant]
     Active Substance: RITUXIMAB
     Dosage: UNK
     Route: 065
     Dates: start: 20160307, end: 20160307
  5. NEBIVOLOL. [Concomitant]
     Active Substance: NEBIVOLOL
     Indication: CARDIAC FAILURE
     Dosage: UNK
  6. IDELALISIB [Suspect]
     Active Substance: IDELALISIB
     Indication: PRODUCT USED FOR UNKNOWN INDICATION
     Dosage: 300 MG, QD
     Route: 048
     Dates: start: 20160307, end: 20160412
  7. MARCUMAR [Suspect]
     Active Substance: PHENPROCOUMON
     Indication: PRODUCT USED FOR UNKNOWN INDICATION
     Route: 065
  8. OPIPRAMOL [Concomitant]
     Active Substance: OPIPRAMOL
  9. MABTHERA [Concomitant]
     Active Substance: RITUXIMAB
     Dosage: UNK
     Route: 065
     Dates: start: 20160321
  10. RAMIPRIL. [Concomitant]
     Active Substance: RAMIPRIL
  11. ULTIBRO BREEZHALER [Concomitant]
     Active Substance: GLYCOPYRRONIUM\INDACATEROL
     Indication: CHRONIC OBSTRUCTIVE PULMONARY DISEASE
     Dosage: UNK
  12. IBUPROFEN. [Concomitant]
     Active Substance: IBUPROFEN
     Indication: OSTEOARTHRITIS
     Dosage: UNK
  13. FUROSEMIDE. [Concomitant]
     Active Substance: FUROSEMIDE
  14. ASPIRIN. [Concomitant]
     Active Substance: ASPIRIN
  15. BERODUAL [Concomitant]
     Active Substance: FENOTEROL HYDROBROMIDE\IPRATROPIUM BROMIDE
     Indication: CHRONIC OBSTRUCTIVE PULMONARY DISEASE
     Dosage: UNK

REACTIONS (2)
  - Hepatotoxicity [Recovered/Resolved]
  - Overdose [Unknown]

NARRATIVE: CASE EVENT DATE: 201604
